FAERS Safety Report 24252478 (Version 1)
Quarter: 2024Q3

REPORT INFORMATION
  Report Type: Spontaneous
  Country: CA (occurrence: CA)
  Receive Date: 20240827
  Receipt Date: 20240827
  Transmission Date: 20241016
  Serious: Yes (Other)
  Sender: AUROBINDO
  Company Number: CA-AUROBINDO-AUR-APL-2024-042341

PATIENT
  Age: 21 Year
  Sex: Female

DRUGS (5)
  1. MONTELUKAST [Suspect]
     Active Substance: MONTELUKAST SODIUM
     Indication: Product used for unknown indication
     Dosage: UNK
     Route: 065
  2. EPINEPHRINE [Suspect]
     Active Substance: EPINEPHRINE
     Indication: Product used for unknown indication
     Dosage: UNK
     Route: 065
  3. BILASTINE [Concomitant]
     Active Substance: BILASTINE
     Indication: Rhinitis allergic
     Dosage: UNK
     Route: 065
  4. BUDESONIDE\FORMOTEROL FUMARATE [Concomitant]
     Active Substance: BUDESONIDE\FORMOTEROL FUMARATE
     Indication: Asthma
     Dosage: UNK, ONCE A DAY
     Route: 065
  5. PREDNISONE [Concomitant]
     Active Substance: PREDNISONE
     Indication: Product used for unknown indication
     Dosage: 50 MILLIGRAM
     Route: 065

REACTIONS (21)
  - Abdominal pain [Unknown]
  - Angioedema [Unknown]
  - Asthma [Unknown]
  - Chills [Unknown]
  - Concomitant disease progression [Unknown]
  - Dyspnoea [Unknown]
  - Eosinophil count increased [Unknown]
  - Feeling cold [Unknown]
  - Heart rate increased [Unknown]
  - Hyperhidrosis [Unknown]
  - Nausea [Unknown]
  - Night sweats [Unknown]
  - Oxygen saturation decreased [Unknown]
  - Pruritus [Unknown]
  - Pulmonary embolism [Unknown]
  - Pyrexia [Unknown]
  - Swelling face [Unknown]
  - Urticaria [Unknown]
  - Vomiting [Unknown]
  - Wheezing [Unknown]
  - Product use in unapproved indication [Unknown]
